FAERS Safety Report 7363210-X (Version None)
Quarter: 2011Q1

REPORT INFORMATION
  Report Type: 
  Country: None (occurrence: None)
  Receive Date: 20110321
  Receipt Date: 20110311
  Transmission Date: 20110831
  Serious: Yes (Other)
  Sender: FDA-Public Use
  Company Number: JP-ASTELLAS-2011US001049

PATIENT
  Age: 71 Year
  Sex: Male

DRUGS (2)
  1. AMBISOME [Suspect]
     Indication: BRONCHOPULMONARY ASPERGILLOSIS
     Dosage: 100 MG, TOTAL DOSE
     Route: 042
     Dates: start: 20110303, end: 20110303
  2. VFEND [Concomitant]
     Indication: BRONCHOPULMONARY ASPERGILLOSIS
     Dosage: UNK
     Route: 065
     Dates: end: 20100303

REACTIONS (1)
  - SHOCK [None]
